FAERS Safety Report 26147646 (Version 1)
Quarter: 2025Q4

REPORT INFORMATION
  Report Type: Spontaneous
  Country: GB (occurrence: GB)
  Receive Date: 20251211
  Receipt Date: 20251211
  Transmission Date: 20260118
  Serious: Yes (Disabling)
  Sender: BAXTER
  Company Number: None

PATIENT
  Age: 72 Year
  Sex: Female
  Weight: 67 kg

DRUGS (11)
  1. METOCLOPRAMIDE [Suspect]
     Active Substance: METOCLOPRAMIDE
     Dosage: 10MG/2ML SOLUTION FOR INJECTION AMPOULES (SOLUTION FOR INJECTION)
     Route: 065
     Dates: start: 20251127, end: 20251127
  2. ONDANSETRON [Suspect]
     Active Substance: ONDANSETRON
     Indication: Ill-defined disorder
     Dosage: TAKE ONE TWICE DAILY
     Route: 065
     Dates: start: 20251021
  3. OMEPRAZOLE [Concomitant]
     Active Substance: OMEPRAZOLE
     Dosage: TAKE ONE DAILY
     Route: 065
     Dates: start: 20250909
  4. Dioralyte Relief [Concomitant]
     Indication: Ill-defined disorder
     Dosage: TAKE ONE AS NEEDED
     Route: 065
     Dates: start: 20250930, end: 20251028
  5. Dioralyte Relief [Concomitant]
     Dosage: 10 SACHETS IN 1L TO DRINK OVER 24HRS
     Route: 065
     Dates: start: 20250930
  6. LOPERAMIDE [Concomitant]
     Active Substance: LOPERAMIDE
     Indication: Ill-defined disorder
     Dosage: TAKE 2 TABLETS 4 TIMES A DAY
     Route: 065
     Dates: start: 20250930
  7. CYCLIZINE [Concomitant]
     Active Substance: CYCLIZINE
     Indication: Ill-defined disorder
     Dosage: TAKE ONE TABLET UP TO MAXIMUM OF THREE TIMES DAILY
     Route: 065
     Dates: start: 20251016, end: 20251113
  8. PROCHLORPERAZINE [Concomitant]
     Active Substance: PROCHLORPERAZINE
     Indication: Ill-defined disorder
     Dosage: KEEP ONE BETWEEN GUM AND LIPS TO DISOLVE, TWICE DAILY AS NEEDED
     Route: 065
     Dates: start: 20251104
  9. OXYCODONE HYDROCHLORIDE [Concomitant]
     Active Substance: OXYCODONE HYDROCHLORIDE
     Indication: Ill-defined disorder
     Dosage: 5MG VIA SYRINGE DRIVER OVER 24HRS AND/OR 2.5-5M...
     Route: 065
     Dates: start: 20251126
  10. INDAPAMIDE [Concomitant]
     Active Substance: INDAPAMIDE
     Indication: Ill-defined disorder
     Dosage: TAKE ONE EACH MORNING FOR LOWERING BLOOD PRESSURE
     Route: 065
     Dates: start: 20250826, end: 20250930
  11. SERTRALINE [Concomitant]
     Active Substance: SERTRALINE HYDROCHLORIDE
     Indication: Ill-defined disorder
     Dosage: TAKE ONCE DAILY
     Route: 065
     Dates: start: 20251125

REACTIONS (2)
  - Mobility decreased [Recovered/Resolved]
  - Gait inability [Unknown]

NARRATIVE: CASE EVENT DATE: 20251127
